FAERS Safety Report 18104044 (Version 1)
Quarter: 2020Q3

REPORT INFORMATION
  Report Type: Spontaneous
  Country: CN (occurrence: CN)
  Receive Date: 20200803
  Receipt Date: 20200803
  Transmission Date: 20201103
  Serious: Yes (Other)
  Sender: FDA-Public Use
  Company Number: CN-MEDEXUS PHARMA, INC.-2020MED00221

PATIENT
  Age: 7 Month
  Sex: Female

DRUGS (2)
  1. METHOTREXATE. [Suspect]
     Active Substance: METHOTREXATE
     Dosage: 2.8 G/M2, OVER 24 HOURS
     Route: 065
  2. METHOTREXATE. [Suspect]
     Active Substance: METHOTREXATE
     Indication: ACUTE LYMPHOCYTIC LEUKAEMIA
     Dosage: 3.5 G/M2, ONCE, OVER 24 HOURS
     Route: 065

REACTIONS (1)
  - Intracranial pressure increased [Recovered/Resolved]
